FAERS Safety Report 6668803-0 (Version None)
Quarter: 2010Q2

REPORT INFORMATION
  Report Type: 
  Country: None (occurrence: None)
  Receive Date: 20100406
  Receipt Date: 20100331
  Transmission Date: 20101027
  Serious: Yes (Other)
  Sender: FDA-Public Use
  Company Number: NL-ASTRAZENECA-2010SE14264

PATIENT
  Sex: Female

DRUGS (9)
  1. SEROQUEL [Suspect]
     Dosage: MORNING 2X25 MG AND EVENING 3X25 MG
     Route: 048
  2. NEXIUM [Concomitant]
     Route: 048
  3. METOPROLOL TARTRATE [Concomitant]
     Route: 048
  4. AMITRIPTYLINE HCL [Concomitant]
  5. KEPPRA [Concomitant]
  6. PRIMPERAN INJ [Concomitant]
  7. CLONAZEPAM [Concomitant]
  8. DICLOPHENAC [Concomitant]
  9. PANADOL [Concomitant]

REACTIONS (6)
  - ANXIETY [None]
  - BLOOD CREATINE PHOSPHOKINASE INCREASED [None]
  - COMA HEPATIC [None]
  - GAMMA-GLUTAMYLTRANSFERASE INCREASED [None]
  - HYPERAMMONAEMIA [None]
  - LIVER FUNCTION TEST ABNORMAL [None]
